FAERS Safety Report 7745679-1 (Version None)
Quarter: 2011Q3

REPORT INFORMATION
  Report Type: 
  Country: None (occurrence: None)
  Receive Date: 20110913
  Receipt Date: 20110829
  Transmission Date: 20111222
  Serious: Yes (Hospitalization, Other)
  Sender: FDA-Public Use
  Company Number: US-BAYER-2011-028327

PATIENT
  Age: 35 Year
  Sex: Female
  Weight: 82.086 kg

DRUGS (21)
  1. PROVENTIL [Concomitant]
     Indication: BRONCHIAL HYPERREACTIVITY
  2. YAZ [Suspect]
     Indication: MENSTRUATION IRREGULAR
     Dosage: UNK
     Dates: start: 20090316, end: 20090429
  3. YAZ [Suspect]
     Indication: PREMENSTRUAL SYNDROME
  4. LEXAPRO [Concomitant]
     Indication: ANXIETY
     Dosage: 10 MG, QD
     Route: 048
     Dates: start: 20090318, end: 20090430
  5. IMITREX [Concomitant]
     Dosage: UNK
     Dates: start: 20090222
  6. LEXAPRO [Concomitant]
     Indication: DEPRESSION
  7. ATIVAN [Concomitant]
     Indication: DEPRESSION
  8. YAZ [Suspect]
     Indication: AFFECTIVE DISORDER
  9. TORADOL [Concomitant]
     Dosage: 10 MG, TID
     Route: 048
     Dates: start: 20090424, end: 20090427
  10. ATIVAN [Concomitant]
     Indication: ANXIETY
     Dosage: 0.5 MG, UNK
     Route: 048
     Dates: start: 20090424, end: 20090430
  11. PROVENTIL [Concomitant]
     Indication: ASTHMA
     Dosage: UNK
     Dates: start: 20071101, end: 20091201
  12. OXYCODONE HCL AND ACETAMINOPHEN [Concomitant]
     Dosage: UNK
     Route: 048
     Dates: start: 20090407
  13. YAZ [Suspect]
     Indication: ACNE
     Dosage: UNK
     Dates: start: 20080508, end: 20090429
  14. CIPROFLOXACIN [Concomitant]
     Dosage: 500 MG, UNK
     Route: 048
     Dates: start: 20090417, end: 20090501
  15. CELEXA [Concomitant]
     Indication: DEPRESSION
     Dosage: 20 MG, UNK
     Route: 048
     Dates: start: 20090310
  16. FAMVIR [Concomitant]
     Indication: HERPES VIRUS INFECTION
     Dosage: 125 MG, UNK
     Route: 048
     Dates: start: 20090413
  17. CIPROFLOXACIN [Concomitant]
     Indication: URINARY TRACT INFECTION
     Dosage: 500 MG, UNK
     Route: 048
     Dates: start: 20090407, end: 20090421
  18. TORADOL [Concomitant]
     Indication: PAIN
     Dosage: 10 MG, TID
     Route: 048
     Dates: start: 20090222
  19. PHENERGAN HCL [Concomitant]
     Dosage: UNK
     Dates: start: 20090222
  20. VICODIN [Concomitant]
     Indication: PAIN
     Dosage: UNK UNK, TID
     Route: 048
     Dates: start: 20090424, end: 20090701
  21. OXYCODONE HCL AND ACETAMINOPHEN [Concomitant]
     Indication: PAIN
     Dosage: UNK
     Route: 048
     Dates: start: 20090407

REACTIONS (19)
  - ASTHMA [None]
  - GENERAL PHYSICAL HEALTH DETERIORATION [None]
  - SWELLING [None]
  - STRESS [None]
  - CHEST PAIN [None]
  - PULMONARY EMBOLISM [None]
  - INJURY [None]
  - PAIN [None]
  - NERVOUSNESS [None]
  - HEADACHE [None]
  - EMOTIONAL DISTRESS [None]
  - ANXIETY [None]
  - PANIC REACTION [None]
  - NIGHT SWEATS [None]
  - PAIN IN EXTREMITY [None]
  - MUSCLE SPASMS [None]
  - FEAR [None]
  - DYSPNOEA [None]
  - PLEURITIC PAIN [None]
